FAERS Safety Report 25617429 (Version 2)
Quarter: 2025Q3

REPORT INFORMATION
  Report Type: Spontaneous
  Country: US (occurrence: US)
  Receive Date: 20250729
  Receipt Date: 20250813
  Transmission Date: 20251021
  Serious: Yes (Other)
  Sender: REGENERON
  Company Number: US-REGENERON PHARMACEUTICALS, INC.-2025-120237

PATIENT
  Age: 76 Year
  Sex: Male

DRUGS (2)
  1. EYLEA HD [Suspect]
     Active Substance: AFLIBERCEPT
     Indication: Neovascular age-related macular degeneration
     Dosage: 8 MG, INTO LEFT EYE, FORMULATION: HD VIAL
  2. EYLEA HD [Suspect]
     Active Substance: AFLIBERCEPT
     Dates: start: 20250327

REACTIONS (5)
  - Dry age-related macular degeneration [Unknown]
  - Retinal pigment epithelial tear [Unknown]
  - Detachment of retinal pigment epithelium [Unknown]
  - Metamorphopsia [Unknown]
  - Vision blurred [Unknown]

NARRATIVE: CASE EVENT DATE: 20250101
